FAERS Safety Report 9266172 (Version 1)
Quarter: 2013Q2

REPORT INFORMATION
  Report Type: Spontaneous
  Country: US (occurrence: US)
  Receive Date: 20130502
  Receipt Date: 20130502
  Transmission Date: 20140414
  Serious: No
  Sender: FDA-Public Use
  Company Number: US-009507513-1304USA017343

PATIENT
  Age: 69 Year
  Sex: Female

DRUGS (3)
  1. COSOPT PF [Suspect]
     Indication: INTRAOCULAR PRESSURE INCREASED
     Dosage: ONE DROP IN THE RIGHT EYE TWICE DAILY
     Route: 047
     Dates: start: 20130212
  2. LUMIGAN [Concomitant]
  3. COMBIGAN [Concomitant]

REACTIONS (2)
  - Pain [Unknown]
  - Joint swelling [Unknown]
